FAERS Safety Report 14184633 (Version 1)
Quarter: 2017Q4

REPORT INFORMATION
  Report Type: Spontaneous
  Country: GB (occurrence: GB)
  Receive Date: 20171114
  Receipt Date: 20171114
  Transmission Date: 20180321
  Serious: Yes (Other)
  Sender: FDA-Public Use
  Company Number: GB-SUN PHARMACEUTICAL INDUSTRIES LTD-2017RR-154572

PATIENT
  Age: 54 Year
  Sex: Female
  Weight: 69.85 kg

DRUGS (1)
  1. CODEINE [Suspect]
     Active Substance: CODEINE
     Indication: BACK PAIN
     Dosage: 30MG X 6
     Route: 048
     Dates: start: 2012, end: 2016

REACTIONS (1)
  - Dyspareunia [Recovered/Resolved]

NARRATIVE: CASE EVENT DATE: 2016
